FAERS Safety Report 15419763 (Version 1)
Quarter: 2018Q3

REPORT INFORMATION
  Report Type: Report from Study
  Country: DE (occurrence: DE)
  Receive Date: 20180924
  Receipt Date: 20180924
  Transmission Date: 20181010
  Serious: Yes (Other)
  Sender: FDA-Public Use
  Company Number: DE-CASPER PHARMA LLC-2018CAS000258

PATIENT
  Sex: Female

DRUGS (11)
  1. FUROSEMIDE. [Concomitant]
     Active Substance: FUROSEMIDE
     Route: 065
  2. ALPHA?METHYLDOPA [Concomitant]
     Active Substance: METHYLDOPA
     Route: 065
  3. METOPROLOL. [Concomitant]
     Active Substance: METOPROLOL
     Route: 065
  4. DARBEPOETIN ALFA [Concomitant]
     Active Substance: DARBEPOETIN ALFA
     Route: 065
  5. COLECALCIFEROL [Concomitant]
     Active Substance: CHOLECALCIFEROL
     Route: 065
  6. ALLOPURINOL. [Suspect]
     Active Substance: ALLOPURINOL
     Indication: HAEMOLYTIC URAEMIC SYNDROME
     Dosage: 100 MILLIGRAM, QD
     Route: 065
  7. CLONIDINE. [Concomitant]
     Active Substance: CLONIDINE
     Route: 065
  8. ALFACALCIDOL [Concomitant]
     Active Substance: ALFACALCIDOL
     Route: 065
  9. MOXONIDINE [Concomitant]
     Active Substance: MOXONIDINE
     Route: 065
  10. DANAPAROID [Concomitant]
     Active Substance: DANAPAROID
     Route: 065
  11. ENOXAPARINE [Concomitant]
     Active Substance: ENOXAPARIN
     Route: 065

REACTIONS (2)
  - Product use in unapproved indication [Unknown]
  - HELLP syndrome [Unknown]
